FAERS Safety Report 15749668 (Version 1)
Quarter: 2018Q4

REPORT INFORMATION
  Report Type: Spontaneous
  Country: US (occurrence: US)
  Receive Date: 20181220
  Receipt Date: 20181220
  Transmission Date: 20190205
  Serious: Yes (Other)
  Sender: FDA-Public Use
  Company Number: None

PATIENT
  Age: 60 Year
  Sex: Female
  Weight: 87.75 kg

DRUGS (8)
  1. OSTEO BI-FLEX EASE [Concomitant]
  2. LEVOTYROXINE [Concomitant]
  3. ONE-A-DAY WOMEN^S 50+ [Concomitant]
  4. EXEMESTANE 25 MG TABLETS [Suspect]
     Active Substance: EXEMESTANE
     Indication: BREAST CANCER METASTATIC
     Dosage: ?          QUANTITY:1 TABLET(S);?
     Route: 048
     Dates: start: 20180323, end: 20181217
  5. IBRANCE [Concomitant]
     Active Substance: PALBOCICLIB
  6. CALCIUM [Concomitant]
     Active Substance: CALCIUM
  7. ANASTROZOLE. [Concomitant]
     Active Substance: ANASTROZOLE
  8. SIMVASTATIN. [Concomitant]
     Active Substance: SIMVASTATIN

REACTIONS (2)
  - Therapeutic response unexpected [None]
  - Trigger finger [None]

NARRATIVE: CASE EVENT DATE: 20181121
